FAERS Safety Report 6428639-2 (Version None)
Quarter: 2009Q4

REPORT INFORMATION
  Report Type: 
  Country: None (occurrence: None)
  Receive Date: 20091104
  Receipt Date: 20091104
  Transmission Date: 20100525
  Serious: Yes (Hospitalization)
  Sender: FDA-Public Use
  Company Number: None

PATIENT
  Age: 79 Year
  Sex: Male

DRUGS (2)
  1. GEMFIBROZIL [Suspect]
     Indication: HYPERLIPIDAEMIA
     Dosage: 1 TAB BID PO
     Route: 048
     Dates: start: 20090603, end: 20090629
  2. SIMVASTATIN [Suspect]
     Dosage: 80 MG PM PO
     Route: 048
     Dates: start: 20080402, end: 20090629

REACTIONS (1)
  - MYALGIA [None]
